FAERS Safety Report 10058585 (Version 1)
Quarter: 2014Q2

REPORT INFORMATION
  Report Type: Spontaneous
  Country: IN (occurrence: None)
  Receive Date: 20140402
  Receipt Date: 20140402
  Transmission Date: 20141212
  Serious: Yes (Hospitalization)
  Sender: FDA-Public Use
  Company Number: FK201401065

PATIENT
  Age: 39 Year
  Sex: Female

DRUGS (1)
  1. ADENOSINE [Suspect]
     Indication: SUPRAVENTRICULAR TACHYCARDIA
     Dosage: 6 MG, BOLUS, INTRAVENOUS BOLUS
     Route: 040

REACTIONS (3)
  - Arteriospasm coronary [None]
  - Acute myocardial infarction [None]
  - Hypotension [None]
